FAERS Safety Report 8954842 (Version 1)
Quarter: 2012Q4

REPORT INFORMATION
  Report Type: 
  Country: BR (occurrence: BR)
  Receive Date: 20121207
  Receipt Date: 20121207
  Transmission Date: 20130627
  Serious: Yes (Hospitalization, Other)
  Sender: FDA-Public Use
  Company Number: BR-ASTRAZENECA-2012SE90652

PATIENT
  Age: 50 Year
  Sex: Female
  Weight: 70 kg

DRUGS (5)
  1. LISINOPRIL [Suspect]
     Indication: HYPERTENSION
     Route: 048
     Dates: start: 2000, end: 2010
  2. LISINOPRIL [Suspect]
     Indication: HYPERTENSION
     Route: 048
  3. SELOPRESS ZOK [Suspect]
     Indication: ARRHYTHMIA
     Dosage: 100/12.5 MG, ONCE DAILY
     Route: 048
     Dates: start: 2002, end: 2011
  4. SELOPRESS ZOK [Suspect]
     Indication: ARRHYTHMIA
     Dosage: 100/12.5 MG, ONCE DAILY
     Route: 048
     Dates: start: 2011
  5. CAPTOPRIL [Concomitant]
     Indication: HYPERTENSION
     Route: 048
     Dates: start: 2000

REACTIONS (9)
  - Uterine leiomyoma [Recovered/Resolved]
  - Menorrhagia [Recovered/Resolved]
  - Blood pressure increased [Recovered/Resolved]
  - Weight increased [Not Recovered/Not Resolved]
  - Anaemia [Recovered/Resolved]
  - Depression [Recovering/Resolving]
  - Fatigue [Recovered/Resolved]
  - Drug ineffective [Unknown]
  - Intentional drug misuse [Recovered/Resolved]
